FAERS Safety Report 5191075-3 (Version None)
Quarter: 2006Q4

REPORT INFORMATION
  Report Type: 
  Country: None (occurrence: None)
  Receive Date: 20061226
  Receipt Date: 20061219
  Transmission Date: 20070319
  Serious: Yes (Hospitalization)
  Sender: FDA-Public Use
  Company Number: 2006UW28277

PATIENT

DRUGS (2)
  1. CRESTOR [Suspect]
     Route: 048
  2. AMARYL [Suspect]

REACTIONS (1)
  - APPENDICITIS [None]
